FAERS Safety Report 4498525-6 (Version None)
Quarter: 2004Q4

REPORT INFORMATION
  Report Type: 
  Country: None (occurrence: None)
  Receive Date: 20041111
  Receipt Date: 20041101
  Transmission Date: 20050328
  Serious: Yes (Hospitalization)
  Sender: FDA-Public Use
  Company Number: US-JNJFOC-20041100490

PATIENT
  Sex: Female
  Weight: 52.16 kg

DRUGS (1)
  1. REMICADE [Suspect]
     Indication: RHEUMATOID ARTHRITIS
     Dosage: THIS WAS MOST RECENT INFUSION.  HAS BEEN ON INFLIXIMAB FOR 1 AND 1/2 YEARS.
     Route: 042

REACTIONS (7)
  - CHEST PAIN [None]
  - DEPRESSION [None]
  - FIBROMYALGIA [None]
  - INFLUENZA LIKE ILLNESS [None]
  - MEMORY IMPAIRMENT [None]
  - PERICARDITIS [None]
  - RESPIRATORY ARREST [None]
